FAERS Safety Report 25063580 (Version 1)
Quarter: 2025Q1

REPORT INFORMATION
  Report Type: Spontaneous
  Country: CN (occurrence: CN)
  Receive Date: 20250311
  Receipt Date: 20250311
  Transmission Date: 20250409
  Serious: Yes (Other)
  Sender: PFIZER
  Company Number: CN-PFIZER INC-PV202500028310

PATIENT
  Age: 53 Year
  Sex: Male
  Weight: 78 kg

DRUGS (2)
  1. AXITINIB [Suspect]
     Active Substance: AXITINIB
     Indication: Neoplasm
     Dosage: 5 MG, 2X/DAY
     Route: 048
     Dates: start: 20250226, end: 20250226
  2. TORIPALIMAB [Suspect]
     Active Substance: TORIPALIMAB
     Indication: Neoplasm
     Dosage: 240 MG, EVERY 3 WEEKS
     Route: 041
     Dates: start: 20250226, end: 20250226

REACTIONS (2)
  - Blood creatinine increased [Recovering/Resolving]
  - Renal impairment [Recovering/Resolving]

NARRATIVE: CASE EVENT DATE: 20250304
